FAERS Safety Report 10165096 (Version 2)
Quarter: 2014Q2

REPORT INFORMATION
  Report Type: Spontaneous
  Country: US (occurrence: US)
  Receive Date: 20140510
  Receipt Date: 20140510
  Transmission Date: 20141212
  Serious: No
  Sender: FDA-Public Use
  Company Number: US-BRISTOL-MYERS SQUIBB COMPANY-19722750

PATIENT
  Age: 53 Year
  Sex: Female
  Weight: 63.94 kg

DRUGS (13)
  1. BYDUREON [Suspect]
     Indication: TYPE 2 DIABETES MELLITUS
     Dosage: PRESCRIPTION #: 6172271?LOT#73505; EXP: JUN16
     Route: 058
     Dates: start: 20131109
  2. HUMALOG [Suspect]
  3. LANTUS [Suspect]
  4. METFORMIN [Concomitant]
  5. COZAAR [Concomitant]
  6. CLONIDINE [Concomitant]
  7. ACEBUTOLOL [Concomitant]
  8. NORVASC [Concomitant]
  9. TEGRETOL [Concomitant]
  10. PROMETRIUM [Concomitant]
  11. ESTROGEN [Concomitant]
  12. DOXEPINE [Concomitant]
     Indication: SLEEP DISORDER
  13. ASPIRIN [Concomitant]

REACTIONS (8)
  - Hunger [Not Recovered/Not Resolved]
  - Blood glucose increased [Not Recovered/Not Resolved]
  - Early satiety [Not Recovered/Not Resolved]
  - Drug dose omission [Unknown]
  - Injection site pain [Not Recovered/Not Resolved]
  - Injection site pruritus [Not Recovered/Not Resolved]
  - Rash [Unknown]
  - Injection site nodule [Unknown]
